FAERS Safety Report 5038799-6 (Version None)
Quarter: 2006Q2

REPORT INFORMATION
  Report Type: 
  Country: None (occurrence: None)
  Receive Date: 20060629
  Receipt Date: 20060419
  Transmission Date: 20061013
  Serious: Yes (Other)
  Sender: FDA-Public Use
  Company Number: PHEH2006US05158

PATIENT
  Age: 12 Year
  Sex: Male
  Weight: 41.723 kg

DRUGS (2)
  1. FOCALIN XR [Suspect]
     Indication: ATTENTION DEFICIT/HYPERACTIVITY DISORDER
     Dosage: 10 MG, QD, IN A.M.
     Route: 048
     Dates: start: 20050927, end: 20060420
  2. ADDERALL 10 [Suspect]

REACTIONS (4)
  - CARDIOVASCULAR DISORDER [None]
  - SINUS BRADYCARDIA [None]
  - SINUS TACHYCARDIA [None]
  - SUPRAVENTRICULAR EXTRASYSTOLES [None]
